FAERS Safety Report 24646253 (Version 1)
Quarter: 2024Q4

REPORT INFORMATION
  Report Type: Report from Study
  Country: US (occurrence: US)
  Receive Date: 20241121
  Receipt Date: 20241121
  Transmission Date: 20250114
  Serious: Yes (Hospitalization)
  Sender: GILEAD
  Company Number: US-GILEAD-2024-0694417

PATIENT
  Age: 70 Year
  Sex: Female

DRUGS (1)
  1. TENOFOVIR ALAFENAMIDE [Suspect]
     Active Substance: TENOFOVIR ALAFENAMIDE
     Indication: Product used for unknown indication
     Dosage: 25MG ONE TABLE BY MOUTH DAILY
     Route: 048
     Dates: start: 20231130, end: 20241101

REACTIONS (1)
  - Surgery [Recovering/Resolving]
